FAERS Safety Report 11873903 (Version 1)
Quarter: 2015Q4

REPORT INFORMATION
  Report Type: Report from Study
  Country: US (occurrence: US)
  Receive Date: 20151229
  Receipt Date: 20151229
  Transmission Date: 20160305
  Serious: No
  Sender: FDA-Public Use
  Company Number: PHEH2015US026662

PATIENT
  Sex: Female

DRUGS (1)
  1. AFINITOR [Suspect]
     Active Substance: EVEROLIMUS
     Indication: HEPATIC CANCER
     Dosage: 7.5 OT, UNK
     Route: 065

REACTIONS (2)
  - Product use issue [Unknown]
  - Neuropathy peripheral [Unknown]
